FAERS Safety Report 5152020-X (Version None)
Quarter: 2006Q4

REPORT INFORMATION
  Report Type: 
  Country: None (occurrence: None)
  Receive Date: 20061116
  Receipt Date: 20061108
  Transmission Date: 20070319
  Serious: Yes (Death)
  Sender: FDA-Public Use
  Company Number: JP-ELI_LILLY_AND_COMPANY-JP200611001988

PATIENT
  Age: 56 Year
  Sex: Male

DRUGS (4)
  1. ZYPREXA [Suspect]
     Indication: SCHIZOPHRENIA
     Dosage: 5 MG, DAILY (1/D)
     Route: 048
  2. DEPAS [Concomitant]
     Dosage: 3 MG, DAILY (1/D)
     Route: 048
  3. NITRAZEPAM [Concomitant]
     Dosage: 10 MG, DAILY (1/D)
     Route: 048
  4. PURSENNID /SCH/ [Concomitant]
     Dosage: 12 MG, DAILY (1/D)
     Route: 048

REACTIONS (2)
  - DECUBITUS ULCER [None]
  - PULMONARY EMBOLISM [None]
